FAERS Safety Report 14900987 (Version 1)
Quarter: 2018Q2

REPORT INFORMATION
  Report Type: Spontaneous
  Country: US (occurrence: US)
  Receive Date: 20180427
  Receipt Date: 20180427
  Transmission Date: 20180711
  Serious: No
  Sender: FDA-Public Use
  Company Number: None

PATIENT
  Age: 52 Year
  Sex: Female

DRUGS (1)
  1. ALUNBRIG [Suspect]
     Active Substance: BRIGATINIB
     Route: 048

REACTIONS (4)
  - Nausea [None]
  - Chest discomfort [None]
  - Cough [None]
  - Balance disorder [None]

NARRATIVE: CASE EVENT DATE: 20180412
